FAERS Safety Report 6671625-8 (Version None)
Quarter: 2010Q2

REPORT INFORMATION
  Report Type: 
  Country: None (occurrence: None)
  Receive Date: 20100406
  Receipt Date: 20100406
  Transmission Date: 20101027
  Serious: Yes (Other)
  Sender: FDA-Public Use
  Company Number: None

PATIENT
  Age: 45 Year
  Sex: Male
  Weight: 123.832 kg

DRUGS (1)
  1. TRILIPIX [Suspect]
     Indication: BLOOD CHOLESTEROL
     Dosage: 115 MG DAILY PO
     Route: 048
     Dates: start: 20100311, end: 20100327

REACTIONS (2)
  - LIBIDO DECREASED [None]
  - SEXUAL DYSFUNCTION [None]
